FAERS Safety Report 10583360 (Version 2)
Quarter: 2014Q4

REPORT INFORMATION
  Report Type: Spontaneous
  Country: DE (occurrence: None)
  Receive Date: 20141112
  Receipt Date: 20141121
  Transmission Date: 20150529
  Serious: Yes (Death)
  Sender: FDA-Public Use
  Company Number: DE-20140167

PATIENT
  Age: 26 Year
  Sex: Female

DRUGS (6)
  1. DEXAMETHASON (DEXAMETHASONE) [Concomitant]
  2. PROFACT (BUSERELINE) [Concomitant]
  3. DOTAREM [Suspect]
     Active Substance: GADOTERATE MEGLUMINE
     Indication: NUCLEAR MAGNETIC RESONANCE IMAGING BRAIN
     Route: 042
     Dates: start: 20141023
  4. GRANOCYTE (LENOGRASTIM) [Suspect]
     Active Substance: LENOGRASTIM
     Indication: APLASIA
     Route: 058
  5. AMPHO-MORONAL (AMPHOTERICINE B) [Concomitant]
  6. PANTOZOL (PANTOPRAZOLE) [Concomitant]

REACTIONS (11)
  - Systemic inflammatory response syndrome [None]
  - Respiratory failure [None]
  - Non-cardiogenic pulmonary oedema [None]
  - Pulmonary oedema [None]
  - Hepatic steatosis [None]
  - Dizziness [None]
  - Shock [None]
  - Hepatotoxicity [None]
  - Pleural effusion [None]
  - Anxiety [None]
  - Haemodynamic instability [None]

NARRATIVE: CASE EVENT DATE: 20141023
